FAERS Safety Report 4885424-0 (Version None)
Quarter: 2006Q1

REPORT INFORMATION
  Report Type: 
  Country: None (occurrence: None)
  Receive Date: 20060119
  Receipt Date: 20051222
  Transmission Date: 20060701
  Serious: Yes (Death, Hospitalization)
  Sender: FDA-Public Use
  Company Number: JP-ABBOTT-05P-087-0320587-00

PATIENT
  Age: 68 Year
  Sex: Male

DRUGS (8)
  1. DEPAKENE [Suspect]
     Indication: DELIRIUM
     Route: 048
     Dates: start: 20051102, end: 20051111
  2. AKINETON [Suspect]
     Indication: DELIRIUM
     Dates: start: 20051102, end: 20051111
  3. TIAPRIDE HYDROCHLORIDE [Suspect]
     Indication: DELIRIUM
     Route: 048
     Dates: start: 20051102, end: 20051111
  4. HALOPERIDOL [Suspect]
     Indication: DELIRIUM
     Route: 048
     Dates: start: 20051102, end: 20051111
  5. MAGNESIUM OXIDE [Suspect]
     Indication: DELIRIUM
     Route: 048
     Dates: start: 20051102, end: 20051111
  6. CARBAZOCHROME SODIUM SULFONATE [Concomitant]
     Indication: SUBDURAL HAEMATOMA
     Route: 048
     Dates: start: 20051005, end: 20051111
  7. NITRAZEPAM [Concomitant]
     Indication: DELIRIUM
     Route: 048
     Dates: start: 20051005, end: 20051111
  8. LEVOMEPROMAZINE MALEATE [Concomitant]
     Indication: DELIRIUM
     Route: 048
     Dates: start: 20051005, end: 20051111

REACTIONS (6)
  - AGRANULOCYTOSIS [None]
  - ANAEMIA [None]
  - CHOLESTASIS [None]
  - JAUNDICE [None]
  - PNEUMONIA [None]
  - STAPHYLOCOCCAL INFECTION [None]
